FAERS Safety Report 7793836-0 (Version None)
Quarter: 2011Q4

REPORT INFORMATION
  Report Type: 
  Country: None (occurrence: None)
  Receive Date: 20111004
  Receipt Date: 20110922
  Transmission Date: 20120403
  Serious: Yes (Disabling, Congenital Anomaly, Other)
  Sender: FDA-Public Use
  Company Number: FR-AMGEN-FRASP2011049688

PATIENT
  Sex: Female

DRUGS (3)
  1. ENBREL [Suspect]
     Dosage: 50 MG, WEEKLY
     Route: 064
     Dates: start: 20081014, end: 20090101
  2. ENBREL [Suspect]
     Dosage: 50 MG, WEEKLY
     Route: 064
     Dates: start: 20081014, end: 20090101
  3. PREDNISONE [Concomitant]
     Dosage: 5 MG, DAILY
     Dates: start: 20080601, end: 20090101

REACTIONS (4)
  - KIDNEY MALFORMATION [None]
  - MATERNAL EXPOSURE DURING PREGNANCY [None]
  - CONGENITAL CYSTIC KIDNEY DISEASE [None]
  - KIDNEY SMALL [None]
